FAERS Safety Report 22629456 (Version 1)
Quarter: 2023Q2

REPORT INFORMATION
  Report Type: Spontaneous
  Country: CN (occurrence: CN)
  Receive Date: 20230622
  Receipt Date: 20230622
  Transmission Date: 20230721
  Serious: Yes (Other)
  Sender: FDA-Public Use
  Company Number: CN-PFIZER INC-PV202300106368

PATIENT
  Age: 59 Year
  Sex: Male

DRUGS (10)
  1. VORICONAZOLE [Suspect]
     Active Substance: VORICONAZOLE
     Indication: Antifungal treatment
     Dosage: UNK
     Dates: end: 202305
  2. MOXIFLOXACIN [Concomitant]
     Active Substance: MOXIFLOXACIN
     Indication: Anti-infective therapy
     Dosage: UNK
  3. MOXIFLOXACIN [Concomitant]
     Active Substance: MOXIFLOXACIN
     Indication: Productive cough
  4. MOXIFLOXACIN [Concomitant]
     Active Substance: MOXIFLOXACIN
     Indication: Liver disorder
  5. ENTECAVIR [Concomitant]
     Active Substance: ENTECAVIR
     Indication: Anti-infective therapy
     Dosage: UNK
  6. ENTECAVIR [Concomitant]
     Active Substance: ENTECAVIR
     Indication: Productive cough
  7. ENTECAVIR [Concomitant]
     Active Substance: ENTECAVIR
     Indication: Liver disorder
  8. ENTECAVIR [Concomitant]
     Active Substance: ENTECAVIR
     Indication: Antiviral treatment
  9. MEROPENEM [Concomitant]
     Active Substance: MEROPENEM
     Indication: Anti-infective therapy
     Dosage: UNK
  10. CASPOFUNGIN ACETATE [Concomitant]
     Active Substance: CASPOFUNGIN ACETATE
     Dosage: UNK

REACTIONS (7)
  - Left ventricular failure [Unknown]
  - Pulmonary oedema [Unknown]
  - Inflammatory marker increased [Unknown]
  - Pneumonia [Unknown]
  - Condition aggravated [Unknown]
  - Pneumothorax [Unknown]
  - Lung hyperinflation [Unknown]

NARRATIVE: CASE EVENT DATE: 20230501
